FAERS Safety Report 9652044 (Version 1)
Quarter: 2013Q4

REPORT INFORMATION
  Report Type: Spontaneous
  Country: GR (occurrence: None)
  Receive Date: 20131025
  Receipt Date: 20131025
  Transmission Date: 20140711
  Serious: Yes (Hospitalization)
  Sender: FDA-Public Use
  Company Number: GR-INDOCO-000002

PATIENT
  Age: 76 Year
  Sex: Female

DRUGS (2)
  1. GLIMEPIRIDE [Suspect]
     Indication: TYPE 2 DIABETES MELLITUS
  2. ISONIAZID [Suspect]
     Indication: LATENT TUBERCULOSIS

REACTIONS (6)
  - Hyperinsulinaemia [None]
  - Hypoglycaemia [None]
  - Drug interaction [None]
  - Atelectasis [None]
  - Pleural fibrosis [None]
  - Tuberculin test positive [None]
